FAERS Safety Report 6612393-5 (Version None)
Quarter: 2010Q1

REPORT INFORMATION
  Report Type: 
  Country: None (occurrence: None)
  Receive Date: 20100303
  Receipt Date: 20100218
  Transmission Date: 20100710
  Serious: Yes (Hospitalization, Other)
  Sender: FDA-Public Use
  Company Number: PHHY2010DE10138

PATIENT
  Sex: Female

DRUGS (9)
  1. EXFORGE [Suspect]
     Indication: ESSENTIAL HYPERTENSION
     Dosage: 1 DF, QD
     Route: 048
     Dates: end: 20091014
  2. TREVILOR [Suspect]
     Indication: DEPRESSION
     Dosage: 75 MG PER DAY
     Route: 048
     Dates: start: 20090723, end: 20090810
  3. TREVILOR [Suspect]
     Dosage: 112.5 MG PER DAY
     Route: 048
     Dates: start: 20090811, end: 20090811
  4. TREVILOR [Suspect]
     Dosage: 150 MG PER DAY
     Route: 048
     Dates: start: 20090812, end: 20090817
  5. TREVILOR [Suspect]
     Dosage: 225 MG PER DAY
     Route: 048
     Dates: start: 20090818, end: 20090908
  6. TREVILOR [Suspect]
     Dosage: 300 MG PER DAY
     Route: 048
     Dates: start: 20090909, end: 20090914
  7. TREVILOR [Suspect]
     Dosage: 150 MG PER DAY
     Route: 048
     Dates: start: 20090915, end: 20090923
  8. TREVILOR [Suspect]
     Dosage: 75 MG PER DAY
     Route: 048
     Dates: start: 20090924, end: 20090925
  9. THYRONAJOD [Concomitant]
     Indication: THYROID DISORDER
     Dosage: 100 UG PER DAY
     Route: 048

REACTIONS (9)
  - CARDIOVASCULAR DISORDER [None]
  - DRUG LEVEL BELOW THERAPEUTIC [None]
  - FALL [None]
  - GASTROINTESTINAL DISORDER [None]
  - HYPOTENSION [None]
  - LOSS OF CONSCIOUSNESS [None]
  - PERIPHERAL VASCULAR DISORDER [None]
  - PSYCHOMOTOR HYPERACTIVITY [None]
  - SYNCOPE [None]
